FAERS Safety Report 8789435 (Version 2)
Quarter: 2012Q4

REPORT INFORMATION
  Report Type: Spontaneous
  Country: US (occurrence: None)
  Receive Date: 20120905
  Receipt Date: 20120907
  Transmission Date: 20130627
  Serious: Yes (Hospitalization)
  Sender: FDA-Public Use
  Company Number: 2012AP002768

PATIENT
  Age: 27 Year
  Sex: Male

DRUGS (1)
  1. QUETIAPINE FUMARATE [Suspect]
     Indication: PRODUCT USED FOR UNKNOWN INDICATION

REACTIONS (9)
  - Mental status changes [None]
  - Flushing [None]
  - Feeling hot [None]
  - Miosis [None]
  - Dry skin [None]
  - Overdose [None]
  - Drug ineffective [None]
  - Heart rate increased [None]
  - Coma scale abnormal [None]
